FAERS Safety Report 5858950-5 (Version None)
Quarter: 2008Q3

REPORT INFORMATION
  Report Type: 
  Country: None (occurrence: None)
  Receive Date: 20080825
  Receipt Date: 20080819
  Transmission Date: 20090109
  Serious: Yes (Hospitalization)
  Sender: FDA-Public Use
  Company Number: 2008SP015974

PATIENT
  Age: 72 Year
  Sex: Male

DRUGS (6)
  1. TEMODAR [Suspect]
     Indication: GLIOBLASTOMA MULTIFORME
     Dosage: 150 MG; QD; PO
     Route: 048
     Dates: start: 20080612, end: 20080724
  2. DEPAKOTE [Concomitant]
  3. LASIX [Concomitant]
  4. VICODIN [Concomitant]
  5. SIMVASTATIN [Concomitant]
  6. LANTUS [Concomitant]

REACTIONS (2)
  - FEBRILE NEUTROPENIA [None]
  - PANCYTOPENIA [None]
